FAERS Safety Report 22035464 (Version 1)
Quarter: 2023Q1

REPORT INFORMATION
  Report Type: Spontaneous
  Country: US (occurrence: US)
  Receive Date: 20230224
  Receipt Date: 20230224
  Transmission Date: 20230417
  Serious: No
  Sender: FDA-Public Use
  Company Number: US-BAYER-2023A019905

PATIENT
  Age: 53 Year
  Sex: Female

DRUGS (4)
  1. MIRENA [Suspect]
     Active Substance: LEVONORGESTREL
     Indication: Contraception
     Dosage: 20?G/DAY
     Route: 015
  2. MIRENA [Suspect]
     Active Substance: LEVONORGESTREL
     Indication: Lung neoplasm malignant
  3. MIRENA [Suspect]
     Active Substance: LEVONORGESTREL
     Indication: Pulmonary mass
  4. MIRENA [Suspect]
     Active Substance: LEVONORGESTREL
     Indication: Bronchitis

REACTIONS (1)
  - Fatigue [None]
